FAERS Safety Report 7536045-2 (Version None)
Quarter: 2011Q2

REPORT INFORMATION
  Report Type: 
  Country: None (occurrence: None)
  Receive Date: 20110609
  Receipt Date: 20110601
  Transmission Date: 20111010
  Serious: Yes (Other)
  Sender: FDA-Public Use
  Company Number: US-ASTELLAS-2011US002643

PATIENT
  Sex: Female
  Weight: 90 kg

DRUGS (10)
  1. CARDIZEM [Concomitant]
     Indication: BLOOD PRESSURE
     Dosage: 120 MG, UID/QD
     Route: 048
     Dates: start: 19991230
  2. CELLCEPT [Concomitant]
     Indication: RENAL AND PANCREAS TRANSPLANT
     Dosage: 250 MG, BID
     Route: 048
     Dates: start: 19991230
  3. LIPITOR [Concomitant]
     Indication: BLOOD CHOLESTEROL
     Dosage: 10 MG, UID/QD
     Route: 048
     Dates: start: 19991230
  4. SEVELAMER [Concomitant]
     Indication: PRODUCT USED FOR UNKNOWN INDICATION
     Dosage: 800 MG, TID
     Route: 065
     Dates: start: 20110523
  5. UNSPECIFIED MEDICATION [Suspect]
     Indication: PRODUCT USED FOR UNKNOWN INDICATION
     Dosage: UNK
     Route: 065
  6. LASIX [Concomitant]
     Indication: DIURETIC THERAPY
     Dosage: 20 MG, BID
     Route: 048
     Dates: start: 20110521
  7. PROGRAF [Suspect]
     Indication: RENAL AND PANCREAS TRANSPLANT
     Dosage: 1 MG, TID
     Route: 065
     Dates: start: 19991230
  8. PREDNISONE [Concomitant]
     Indication: RENAL AND PANCREAS TRANSPLANT
     Dosage: 20 MG, UID/QD
     Route: 048
     Dates: start: 19991230
  9. JANUVIA [Concomitant]
     Indication: BLOOD GLUCOSE FLUCTUATION
     Dosage: 25 MG, UID/QD
     Route: 048
     Dates: start: 20110521
  10. SODIUM BICARBONATE [Concomitant]
     Indication: PRODUCT USED FOR UNKNOWN INDICATION
     Dosage: 650 MG, BID
     Route: 065
     Dates: start: 19991230

REACTIONS (3)
  - OFF LABEL USE [None]
  - HYPERGLYCAEMIA [None]
  - DIABETIC KETOACIDOSIS [None]
